FAERS Safety Report 5994533-4 (Version None)
Quarter: 2008Q4

REPORT INFORMATION
  Report Type: 
  Country: None (occurrence: None)
  Receive Date: 20081212
  Receipt Date: 20081205
  Transmission Date: 20090506
  Serious: Yes (Other)
  Sender: FDA-Public Use
  Company Number: JP-MERCK-0812USA02230

PATIENT

DRUGS (4)
  1. SINGULAIR [Suspect]
     Route: 048
     Dates: start: 20071201
  2. ADOAIR [Concomitant]
  3. THEO-DUR [Concomitant]
     Route: 048
  4. PREDONINE [Concomitant]
     Route: 065

REACTIONS (1)
  - DEAFNESS UNILATERAL [None]
